FAERS Safety Report 4577743-2 (Version None)
Quarter: 2005Q1

REPORT INFORMATION
  Report Type: 
  Country: None (occurrence: None)
  Receive Date: 20050201
  Receipt Date: 20050124
  Transmission Date: 20050727
  Serious: Yes (Other)
  Sender: FDA-Public Use
  Company Number: C2003-00069

PATIENT
  Age: 83 Year
  Sex: Female

DRUGS (3)
  1. TUBERSOL [Suspect]
     Indication: TUBERCULIN TEST
     Dosage: (0.5 ML) ; ARM L
     Dates: start: 20030213
  2. AMOXICILLIN [Concomitant]
  3. BIAXIN [Concomitant]

REACTIONS (7)
  - BLOOD BLISTER [None]
  - INJECTION SITE ERYTHEMA [None]
  - INJECTION SITE REACTION [None]
  - INJECTION SITE VESICLES [None]
  - OEDEMA MOUTH [None]
  - PRURITUS [None]
  - SWELLING FACE [None]
